FAERS Safety Report 8724445 (Version 2)
Quarter: 2012Q4

REPORT INFORMATION
  Report Type: Report from Study
  Country: KR (occurrence: KR)
  Receive Date: 20120815
  Receipt Date: 20121107
  Transmission Date: 20130627
  Serious: Yes (Hospitalization)
  Sender: FDA-Public Use
  Company Number: KR-009507513-2012SP036328

PATIENT
  Age: 59 Year
  Sex: Male
  Weight: 75.6 kg

DRUGS (4)
  1. BOCEPREVIR [Suspect]
     Indication: CHRONIC HEPATITIS C
     Dosage: 12 DF, TID
     Route: 048
     Dates: start: 20120503, end: 20120530
  2. MK-8908 [Suspect]
     Indication: CHRONIC HEPATITIS C
     Dosage: 5 DF, BID
     Route: 048
     Dates: start: 20120405, end: 20120530
  3. PEG-INTRON [Suspect]
     Indication: CHRONIC HEPATITIS C
     Dosage: 1 DF, QW
     Route: 058
     Dates: start: 20120405, end: 20120530
  4. GELFOS [Concomitant]
     Indication: GASTRITIS ATROPHIC
     Dosage: UNK
     Route: 048
     Dates: start: 20120410

REACTIONS (2)
  - Major depression [Recovered/Resolved]
  - Suicidal ideation [None]
